FAERS Safety Report 10509896 (Version 2)
Quarter: 2014Q4

REPORT INFORMATION
  Report Type: Spontaneous
  Country: US (occurrence: US)
  Receive Date: 20141010
  Receipt Date: 20141021
  Transmission Date: 20150528
  Serious: Yes (Hospitalization)
  Sender: FDA-Public Use
  Company Number: US-UNITED THERAPEUTICS-UNT-2014-008654

PATIENT
  Age: 58 Year
  Sex: Female
  Weight: 58.96 kg

DRUGS (1)
  1. REMODULIN [Suspect]
     Active Substance: TREPROSTINIL
     Indication: COR PULMONALE CHRONIC
     Dosage: 0.022 ?G/KG, CONTINUING
     Route: 058
     Dates: start: 20050113

REACTIONS (6)
  - Erythema [Unknown]
  - Ascites [Unknown]
  - Seizure [Unknown]
  - Oedema peripheral [Unknown]
  - Infusion site pain [Unknown]
  - Infusion site erythema [Unknown]

NARRATIVE: CASE EVENT DATE: 2014
